FAERS Safety Report 5779362-9 (Version None)
Quarter: 2008Q2

REPORT INFORMATION
  Report Type: 
  Country: None (occurrence: None)
  Receive Date: 20080619
  Receipt Date: 20080612
  Transmission Date: 20081010
  Serious: Yes (Hospitalization)
  Sender: FDA-Public Use
  Company Number: JP-BOEHRINGER INGELHEIM GMBH, GERMANY-2008-BP-08644NB

PATIENT
  Age: 71 Year
  Sex: Female

DRUGS (2)
  1. PRAMIPEXOLE DIHYDROCHLORIDE [Suspect]
     Indication: PARKINSON'S DISEASE
     Route: 048
     Dates: start: 20080305, end: 20080425
  2. MENESIT [Suspect]
     Indication: PARKINSON'S DISEASE
     Route: 048
     Dates: start: 20080225, end: 20080425

REACTIONS (3)
  - DIZZINESS [None]
  - DYSPEPSIA [None]
  - VOMITING [None]
